FAERS Safety Report 6021447-6 (Version None)
Quarter: 2008Q4

REPORT INFORMATION
  Report Type: 
  Country: None (occurrence: None)
  Receive Date: 20081229
  Receipt Date: 20081217
  Transmission Date: 20090506
  Serious: Yes (Other)
  Sender: FDA-Public Use
  Company Number: CA-JNJFOC-20080601998

PATIENT
  Age: 9 Decade
  Sex: Female

DRUGS (5)
  1. TYLENOL W/ CODEINE NO. 3 [Suspect]
     Indication: PAIN
     Route: 065
  2. TYLENOL W/ CODEINE NO. 3 [Suspect]
     Indication: CEREBROVASCULAR ACCIDENT
     Route: 065
  3. LACTULOSE [Concomitant]
     Indication: CONSTIPATION
  4. PRUNE JUICE [Concomitant]
     Indication: CONSTIPATION
  5. COLACE [Concomitant]
     Indication: PAIN

REACTIONS (3)
  - CONSTIPATION [None]
  - DIARRHOEA [None]
  - DYSENTERY [None]
